FAERS Safety Report 7570911-7 (Version None)
Quarter: 2011Q2

REPORT INFORMATION
  Report Type: 
  Country: None (occurrence: None)
  Receive Date: 20110624
  Receipt Date: 20110622
  Transmission Date: 20111010
  Serious: Yes (Other)
  Sender: FDA-Public Use
  Company Number: DE-ABBOTT-11P-062-0700803-00

PATIENT
  Sex: Female
  Weight: 70 kg

DRUGS (4)
  1. HUMIRA [Suspect]
     Route: 058
     Dates: start: 20110126, end: 20110223
  2. HUMIRA [Suspect]
  3. METHOTREXATE [Concomitant]
     Indication: POLYARTHRITIS
     Dates: start: 20101201, end: 20110223
  4. HUMIRA [Suspect]
     Indication: POLYARTHRITIS
     Route: 058
     Dates: start: 20101222

REACTIONS (2)
  - EPISTAXIS [None]
  - LEUKOCYTOSIS [None]
